FAERS Safety Report 8440698-4 (Version None)
Quarter: 2012Q2

REPORT INFORMATION
  Report Type: 
  Country: None (occurrence: None)
  Receive Date: 20120615
  Receipt Date: 20120611
  Transmission Date: 20120825
  Serious: No
  Sender: FDA-Public Use
  Company Number: US-TEVA-342313USA

PATIENT
  Sex: Male

DRUGS (2)
  1. CARBAMAZEPINE [Interacting]
     Indication: MOOD ALTERED
     Dosage: 400 MILLIGRAM;
     Route: 048
  2. NUVIGIL [Suspect]
     Indication: NARCOLEPSY
     Dosage: 300 MILLIGRAM;
     Route: 048
     Dates: start: 20120601

REACTIONS (3)
  - PARAESTHESIA ORAL [None]
  - DRUG INTERACTION [None]
  - DYSPHONIA [None]
